FAERS Safety Report 8765958 (Version 1)
Quarter: 2012Q4

REPORT INFORMATION
  Report Type: 
  Country: DE (occurrence: DE)
  Receive Date: 20120904
  Receipt Date: 20120904
  Transmission Date: 20130627
  Serious: Yes (Other)
  Sender: FDA-Public Use
  Company Number: DE-ASTRAZENECA-2012SE65272

PATIENT
  Sex: Female

DRUGS (2)
  1. SEROQUEL PROLONG [Suspect]
     Route: 048
  2. L-THYROX [Concomitant]

REACTIONS (1)
  - Thyroid neoplasm [Not Recovered/Not Resolved]
